FAERS Safety Report 21141295 (Version 1)
Quarter: 2022Q3

REPORT INFORMATION
  Report Type: Other
  Country: EG (occurrence: None)
  Receive Date: 20220728
  Receipt Date: 20220728
  Transmission Date: 20221027
  Serious: Yes (Hospitalization, Other)
  Sender: FDA-Public Use
  Company Number: EG-ROCHE-2891897

PATIENT
  Age: 39 Year
  Sex: Male
  Weight: 98 kg

DRUGS (6)
  1. OCRELIZUMAB [Suspect]
     Active Substance: OCRELIZUMAB
     Indication: Relapsing-remitting multiple sclerosis
     Dosage: NEXT DOSE ON 26/OCT/2019, 22/APR/2020, 04/NOV/2020, 28/APR/2021 TOTAL VOLUME ADMINISTERED PRIOR TO S
     Route: 042
     Dates: start: 20191012
  2. METHYLPREDNISOLONE [Suspect]
     Active Substance: METHYLPREDNISOLONE
     Indication: Premedication
     Dosage: 1 AMPULE?NEXT DOSE ON 04/NOV/2020, 28/APR/2021, 05/MAY.2021, 06/NOV/2021,02/JUL/2022
     Route: 042
     Dates: start: 20200422, end: 20200422
  3. INCONT [Concomitant]
     Dosage: 1 U (UNIT)
     Route: 048
     Dates: start: 2019
  4. OMEGA 3 PLUS [FISH OIL] [Concomitant]
     Route: 048
     Dates: start: 20201104
  5. PHENIRAMINE [Concomitant]
     Active Substance: PHENIRAMINE
     Dosage: 1 AMPULE,?NEXT DOSE: 02/JUL/2022
     Route: 042
     Dates: start: 20211106, end: 20211106
  6. SOLU-MEDROL [Concomitant]
     Active Substance: METHYLPREDNISOLONE SODIUM SUCCINATE
     Route: 042
     Dates: start: 20211016, end: 20211028

REACTIONS (6)
  - Deep vein thrombosis [Recovered/Resolved]
  - Pulmonary hypertension [Recovered/Resolved]
  - Tricuspid valve incompetence [Not Recovered/Not Resolved]
  - Peripheral arterial occlusive disease [Recovered/Resolved]
  - Acute myocardial infarction [Recovered/Resolved]
  - Pneumonia [Recovered/Resolved]

NARRATIVE: CASE EVENT DATE: 20210514
